FAERS Safety Report 25420154 (Version 2)
Quarter: 2025Q3

REPORT INFORMATION
  Report Type: Report from Study
  Country: US (occurrence: US)
  Receive Date: 20250610
  Receipt Date: 20250803
  Transmission Date: 20251021
  Serious: Yes (Other)
  Sender: ALEXION PHARMACEUTICALS
  Company Number: US-AstraZeneca-CH-00883861A

PATIENT
  Sex: Male

DRUGS (1)
  1. ULTOMIRIS [Suspect]
     Active Substance: RAVULIZUMAB-CWVZ
     Indication: Myasthenia gravis
     Route: 065

REACTIONS (9)
  - Weight decreased [Unknown]
  - Cataract [Unknown]
  - COVID-19 [Unknown]
  - Fatigue [Unknown]
  - Clumsiness [Unknown]
  - Hypotension [Unknown]
  - Musculoskeletal disorder [Unknown]
  - Heart rate decreased [Unknown]
  - Asthenia [Unknown]
